FAERS Safety Report 4697853-9 (Version None)
Quarter: 2005Q2

REPORT INFORMATION
  Report Type: 
  Country: None (occurrence: None)
  Receive Date: 20050119
  Receipt Date: 20050119
  Transmission Date: 20051028
  Serious: Yes (Other)
  Sender: FDA-Public Use
  Company Number: None

PATIENT
  Sex: Female
  Weight: 60.3284 kg

DRUGS (5)
  1. GENERIC DILANTIN [Suspect]
     Indication: CONVULSION
     Dosage: 100MG 2 CAPSULES BID
  2. ZOCOR [Concomitant]
  3. LOTREL [Concomitant]
  4. DYAZIDE [Concomitant]
  5. GLUCOTROL XL [Concomitant]

REACTIONS (2)
  - DIARRHOEA [None]
  - VOMITING [None]
